FAERS Safety Report 23150178 (Version 1)
Quarter: 2023Q4

REPORT INFORMATION
  Report Type: Spontaneous
  Country: US (occurrence: US)
  Receive Date: 20231106
  Receipt Date: 20231106
  Transmission Date: 20240110
  Serious: No
  Sender: FDA-Public Use
  Company Number: US-Calliditas-2023CAL01375

PATIENT
  Age: 43 Year
  Sex: Male
  Weight: 92.07 kg

DRUGS (1)
  1. TARPEYO [Suspect]
     Active Substance: BUDESONIDE
     Indication: IgA nephropathy
     Route: 048
     Dates: start: 20230801

REACTIONS (3)
  - Blood urine present [Unknown]
  - Haematospermia [Unknown]
  - Inflammation [Unknown]
